FAERS Safety Report 6672712-0 (Version None)
Quarter: 2010Q2

REPORT INFORMATION
  Report Type: 
  Country: None (occurrence: None)
  Receive Date: 20100406
  Receipt Date: 20100322
  Transmission Date: 20101027
  Serious: Yes (Hospitalization)
  Sender: FDA-Public Use
  Company Number: 009241

PATIENT
  Sex: Female
  Weight: 105.4 kg

DRUGS (6)
  1. CIMZIA [Suspect]
     Indication: CROHN'S DISEASE
     Dosage: (400 MG SUBCUTANEOUS)
     Route: 058
     Dates: start: 20081001
  2. PROTONIX /01263201/ [Concomitant]
  3. ABILIFY [Concomitant]
  4. CELEXA [Concomitant]
  5. VALTREX [Concomitant]
  6. PERCOCET [Concomitant]

REACTIONS (2)
  - POST PROCEDURAL INFECTION [None]
  - THORACIC OPERATION [None]
